FAERS Safety Report 6491487-1 (Version None)
Quarter: 2009Q4

REPORT INFORMATION
  Report Type: 
  Country: None (occurrence: None)
  Receive Date: 20091211
  Receipt Date: 20091208
  Transmission Date: 20100525
  Serious: Yes (Hospitalization, Other)
  Sender: FDA-Public Use
  Company Number: DE-ABBOTT-09P-062-0613540-00

PATIENT
  Sex: Female
  Weight: 62 kg

DRUGS (5)
  1. KALETRA [Suspect]
     Indication: HIV INFECTION
     Dosage: 2 X 2
     Route: 048
     Dates: start: 20070922
  2. TRUVADA [Concomitant]
     Indication: HIV INFECTION
     Dates: start: 20070122
  3. FLUCTIN [Concomitant]
     Indication: DEPRESSION
     Dosage: 20 MG EVERY SECOND DAY
     Route: 048
     Dates: start: 20080226
  4. RISPERDAL [Concomitant]
     Indication: PSYCHOTIC DISORDER
     Route: 048
     Dates: start: 20060116
  5. METHADON [Concomitant]
     Indication: PSYCHOTIC DISORDER
     Route: 048
     Dates: start: 20080226

REACTIONS (1)
  - ABORTION INCOMPLETE [None]
